FAERS Safety Report 7746612-9 (Version None)
Quarter: 2011Q3

REPORT INFORMATION
  Report Type: 
  Country: None (occurrence: None)
  Receive Date: 20110908
  Receipt Date: 20110826
  Transmission Date: 20111222
  Serious: Yes (Other)
  Sender: FDA-Public Use
  Company Number: DE-1187775

PATIENT

DRUGS (1)
  1. FLUORESCITE [Suspect]
     Dosage: INTRAVENOUS BOLUS
     Route: 040
     Dates: start: 20110826, end: 20110826

REACTIONS (4)
  - DYSPNOEA [None]
  - CONVULSION [None]
  - MACULAR OEDEMA [None]
  - URINARY INCONTINENCE [None]
